FAERS Safety Report 5363755-8 (Version None)
Quarter: 2007Q2

REPORT INFORMATION
  Report Type: 
  Country: None (occurrence: None)
  Receive Date: 20070618
  Receipt Date: 20070618
  Transmission Date: 20071010
  Serious: No
  Sender: FDA-Public Use
  Company Number: None

PATIENT
  Sex: Female
  Weight: 44 kg

DRUGS (1)
  1. FLUCONAZOLE [Suspect]
     Indication: PROPHYLAXIS
     Dosage: 400 MG DAILY PO
     Route: 048
     Dates: start: 20070501, end: 20070612

REACTIONS (1)
  - BLOOD TRIGLYCERIDES INCREASED [None]
